FAERS Safety Report 25553064 (Version 1)
Quarter: 2025Q3

REPORT INFORMATION
  Report Type: Spontaneous
  Country: US (occurrence: US)
  Receive Date: 20250715
  Receipt Date: 20250715
  Transmission Date: 20251021
  Serious: No
  Sender: ALEXION PHARMACEUTICALS
  Company Number: US-AstraZeneca-CH-00908572A

PATIENT
  Age: 79 Year

DRUGS (2)
  1. TAGRISSO [Suspect]
     Active Substance: OSIMERTINIB
     Indication: Non-small cell lung cancer
     Route: 065
  2. CEPHALEXIN [Concomitant]
     Active Substance: CEPHALEXIN
     Route: 065

REACTIONS (12)
  - Rash [Unknown]
  - Skin infection [Unknown]
  - Dysgeusia [Unknown]
  - Diarrhoea [Unknown]
  - Glossodynia [Unknown]
  - Fatigue [Unknown]
  - Headache [Unknown]
  - Chills [Unknown]
  - Therapy cessation [Unknown]
  - Abdominal discomfort [Unknown]
  - Nausea [Unknown]
  - Acne [Unknown]
